FAERS Safety Report 8011476-5 (Version None)
Quarter: 2011Q4

REPORT INFORMATION
  Report Type: 
  Country: None (occurrence: None)
  Receive Date: 20111228
  Receipt Date: 20111221
  Transmission Date: 20120403
  Serious: Yes (Other)
  Sender: FDA-Public Use
  Company Number: US-PFIZER INC-2011147841

PATIENT
  Sex: Male

DRUGS (1)
  1. CHANTIX [Suspect]
     Indication: SMOKING CESSATION THERAPY
     Dosage: 2 MG, UNK
     Dates: start: 20071101, end: 20081101

REACTIONS (5)
  - AFFECTIVE DISORDER [None]
  - SUICIDE ATTEMPT [None]
  - AGGRESSION [None]
  - ANXIETY [None]
  - DEPRESSION [None]
